FAERS Safety Report 13488163 (Version 1)
Quarter: 2017Q2

REPORT INFORMATION
  Report Type: Spontaneous
  Country: US (occurrence: US)
  Receive Date: 20170426
  Receipt Date: 20170426
  Transmission Date: 20170830
  Serious: No
  Sender: FDA-Public Use
  Company Number: US-ALKERMES INC.-ALK-2016-002301

PATIENT
  Age: 47 Year
  Sex: Male

DRUGS (1)
  1. VIVITROL [Suspect]
     Active Substance: NALTREXONE
     Indication: PRODUCT USED FOR UNKNOWN INDICATION
     Dosage: 380 MG, QMO
     Route: 030
     Dates: start: 20160729

REACTIONS (6)
  - Muscular weakness [Recovered/Resolved]
  - Gait disturbance [Recovered/Resolved]
  - Injection site pain [Recovered/Resolved]
  - Nerve injury [Recovered/Resolved]
  - Drug administration error [Recovered/Resolved]
  - Injection site reaction [Recovered/Resolved]

NARRATIVE: CASE EVENT DATE: 20160729
